FAERS Safety Report 24843057 (Version 1)
Quarter: 2025Q1

REPORT INFORMATION
  Report Type: Report from Study
  Country: US (occurrence: US)
  Receive Date: 20250115
  Receipt Date: 20250115
  Transmission Date: 20250409
  Serious: No
  Sender: HRA PHARMA
  Company Number: US-ORG100014127-2024000147

PATIENT
  Age: 58 Year
  Sex: Female

DRUGS (10)
  1. LYSODREN [Suspect]
     Active Substance: MITOTANE
     Indication: Adrenocortical carcinoma
     Route: 048
     Dates: start: 20231204
  2. LYSODREN [Suspect]
     Active Substance: MITOTANE
     Indication: Adrenocortical carcinoma
     Route: 048
  3. KEYTRUDA INJ 100MG/4M [Concomitant]
     Indication: Product used for unknown indication
  4. TEMAZEPAM CAP 30MG [Concomitant]
     Indication: Product used for unknown indication
  5. Albuterol AER HFA [Concomitant]
     Indication: Product used for unknown indication
  6. BREYNA 160/4,.5 [Concomitant]
     Indication: Product used for unknown indication
  7. FLUDROCORT TAB 0.1 MG [Concomitant]
     Indication: Product used for unknown indication
  8. HYDROCORT TAB 10/20MG [Concomitant]
     Indication: Product used for unknown indication
  9. IMODIUM AD TAB 20 MG [Concomitant]
     Indication: Product used for unknown indication
  10. ONDANSETRON TAB 8 MG ODT [Concomitant]
     Indication: Product used for unknown indication

REACTIONS (1)
  - Off label use [Unknown]

NARRATIVE: CASE EVENT DATE: 20231204
